FAERS Safety Report 11359946 (Version 2)
Quarter: 2015Q3

REPORT INFORMATION
  Report Type: Report from Study
  Country: CA (occurrence: CA)
  Receive Date: 20150810
  Receipt Date: 20150909
  Transmission Date: 20151125
  Serious: Yes (Other)
  Sender: FDA-Public Use
  Company Number: CA-ROCHE-1237762

PATIENT
  Age: 54 Year
  Sex: Female
  Weight: 136 kg

DRUGS (26)
  1. ACETAMINOPHEN. [Concomitant]
     Active Substance: ACETAMINOPHEN
     Indication: PREMEDICATION
     Route: 048
     Dates: start: 20120510
  2. MICARDIS [Concomitant]
     Active Substance: TELMISARTAN
  3. AMLODIPINE [Concomitant]
     Active Substance: AMLODIPINE BESYLATE
  4. CALCITE [Concomitant]
     Active Substance: CALCIUM CARBONATE
  5. RANITIDINE [Concomitant]
     Active Substance: RANITIDINE\RANITIDINE HYDROCHLORIDE
  6. METHYLPREDNISOLONE. [Concomitant]
     Active Substance: METHYLPREDNISOLONE
     Indication: PREMEDICATION
     Route: 042
     Dates: start: 20120510
  7. ACETAMINOPHEN\TRAMADOL HYDROCHLORIDE [Concomitant]
     Active Substance: ACETAMINOPHEN\TRAMADOL HYDROCHLORIDE
  8. APO-MEDROXY [Concomitant]
  9. ANASTROZOLE. [Concomitant]
     Active Substance: ANASTROZOLE
  10. PREGABALINE [Concomitant]
     Active Substance: PREGABALIN
  11. DIPHENHYDRAMINE HCL [Concomitant]
     Active Substance: DIPHENHYDRAMINE HYDROCHLORIDE
     Indication: PREMEDICATION
     Route: 048
     Dates: start: 20120510
  12. ROSUVASTATIN [Concomitant]
     Active Substance: ROSUVASTATIN
  13. METHOTREXATE [Concomitant]
     Active Substance: METHOTREXATE
     Dosage: DISCONTINUED
     Route: 065
  14. LEUCOVORIN CALCIUM. [Concomitant]
     Active Substance: LEUCOVORIN CALCIUM
     Dosage: DISCONTINUED
     Route: 065
  15. CYMBALTA [Concomitant]
     Active Substance: DULOXETINE HYDROCHLORIDE
  16. CYCLOBENZAPRINE [Concomitant]
     Active Substance: CYCLOBENZAPRINE
  17. CELEBREX [Concomitant]
     Active Substance: CELECOXIB
  18. RITUXAN [Suspect]
     Active Substance: RITUXIMAB
     Indication: RHEUMATOID ARTHRITIS
     Dosage: FREQUENCY: DAY 1, DAY 15
     Route: 042
     Dates: start: 20120510, end: 201501
  19. OMEPRAZOLE. [Concomitant]
     Active Substance: OMEPRAZOLE
  20. NOVOQUININE [Concomitant]
  21. NOVO-CYCLOPRINE [Concomitant]
  22. PREDNISONE. [Concomitant]
     Active Substance: PREDNISONE
  23. VENLAFAXINE [Concomitant]
     Active Substance: VENLAFAXINE HYDROCHLORIDE
  24. CRESTOR [Concomitant]
     Active Substance: ROSUVASTATIN CALCIUM
  25. NOVO-DIFENAC [Concomitant]
  26. ULTRAM [Concomitant]
     Active Substance: TRAMADOL HYDROCHLORIDE

REACTIONS (3)
  - Arthralgia [Not Recovered/Not Resolved]
  - Breast cancer [Recovering/Resolving]
  - Knee operation [Not Recovered/Not Resolved]

NARRATIVE: CASE EVENT DATE: 201212
